FAERS Safety Report 7987842-0 (Version None)
Quarter: 2011Q4

REPORT INFORMATION
  Report Type: 
  Country: None (occurrence: None)
  Receive Date: 20111216
  Receipt Date: 20110510
  Transmission Date: 20120403
  Serious: No
  Sender: FDA-Public Use
  Company Number: US-BRISTOL-MYERS SQUIBB COMPANY-15731458

PATIENT
  Age: 33 Year
  Sex: Male

DRUGS (1)
  1. ABILIFY [Suspect]
     Indication: ANXIETY
     Dates: start: 20110501

REACTIONS (5)
  - VOMITING [None]
  - CONSTIPATION [None]
  - INSOMNIA [None]
  - CHILLS [None]
  - PAIN [None]
